FAERS Safety Report 16786519 (Version 1)
Quarter: 2019Q3

REPORT INFORMATION
  Report Type: Spontaneous
  Country: CA (occurrence: CA)
  Receive Date: 20190909
  Receipt Date: 20190909
  Transmission Date: 20191005
  Serious: Yes (Life-Threatening, Other)
  Sender: FDA-Public Use
  Company Number: CA-NAPPMUNDI-CAN-2019-0010284

PATIENT
  Sex: Male

DRUGS (1)
  1. OXYNEO [Suspect]
     Active Substance: OXYCODONE
     Indication: PAIN
     Dosage: UNK
     Route: 065

REACTIONS (8)
  - Depression [Unknown]
  - Vomiting [Unknown]
  - Loss of employment [Unknown]
  - Suicidal ideation [Unknown]
  - Unevaluable event [Unknown]
  - Divorced [Unknown]
  - Nausea [Unknown]
  - Drug dependence [Unknown]
